FAERS Safety Report 7161793-6 (Version None)
Quarter: 2010Q4

REPORT INFORMATION
  Report Type: 
  Country: None (occurrence: None)
  Receive Date: 20101201
  Receipt Date: 20101122
  Transmission Date: 20110411
  Serious: Yes (Other)
  Sender: FDA-Public Use
  Company Number: 2010-3456

PATIENT
  Age: 49 Year
  Sex: Female
  Weight: 64 kg

DRUGS (1)
  1. SOMATULINE DEPOT [Suspect]
     Indication: NEUROENDOCRINE TUMOUR
     Dosage: 90 MG (90 MG, 1 IN 4 WK), SUBCUTANEOUS
     Route: 058
     Dates: start: 20090813, end: 20100930

REACTIONS (3)
  - DIARRHOEA [None]
  - FLUSHING [None]
  - NODULE [None]
